FAERS Safety Report 8840461 (Version 2)
Quarter: 2013Q1

REPORT INFORMATION
  Report Type: Spontaneous
  Country: US (occurrence: US)
  Receive Date: 20121015
  Receipt Date: 20130116
  Transmission Date: 20140127
  Serious: Yes (Death)
  Sender: FDA-Public Use
  Company Number: US-ROCHE-1111274

PATIENT
  Sex: Female

DRUGS (2)
  1. NUTROPIN [Suspect]
     Indication: CYSTIC FIBROSIS
     Route: 065
  2. NUTROPIN [Suspect]
     Indication: DWARFISM
     Route: 065
     Dates: start: 19990702

REACTIONS (1)
  - Death [Fatal]
